FAERS Safety Report 21704694 (Version 1)
Quarter: 2022Q4

REPORT INFORMATION
  Report Type: Spontaneous
  Country: US (occurrence: US)
  Receive Date: 20221209
  Receipt Date: 20221209
  Transmission Date: 20230113
  Serious: No
  Sender: FDA-Public Use
  Company Number: US-drreddys-SPO/USA/22/0157802

PATIENT
  Sex: Female

DRUGS (2)
  1. HABITROL [Suspect]
     Active Substance: NICOTINE
     Indication: Tobacco user
     Route: 062
  2. HABITROL [Suspect]
     Active Substance: NICOTINE
     Route: 062

REACTIONS (3)
  - Pruritus [Unknown]
  - Dry skin [Unknown]
  - Dehydration [Unknown]
